FAERS Safety Report 8161427-8 (Version None)
Quarter: 2012Q1

REPORT INFORMATION
  Report Type: 
  Country: None (occurrence: None)
  Receive Date: 20120224
  Receipt Date: 20120212
  Transmission Date: 20120608
  Serious: Yes (Other)
  Sender: FDA-Public Use
  Company Number: DE-UCBSA-051453

PATIENT
  Age: 61 Year
  Sex: Female
  Weight: 90 kg

DRUGS (3)
  1. ZOLPIDEM [Suspect]
     Dosage: 5-6 TABLET
     Route: 048
  2. ALCOHOL [Suspect]
     Dosage: UNKNOWN QUANTITY
     Route: 048
  3. KEPPRA [Suspect]
     Dosage: 5 - 6 TABLET
     Route: 048

REACTIONS (2)
  - SUICIDE ATTEMPT [None]
  - TACHYCARDIA [None]
